FAERS Safety Report 8377308-0 (Version None)
Quarter: 2012Q2

REPORT INFORMATION
  Report Type: 
  Country: None (occurrence: None)
  Receive Date: 20120522
  Receipt Date: 20120507
  Transmission Date: 20120825
  Serious: Yes (Other)
  Sender: FDA-Public Use
  Company Number: ES-WATSON-2012-08228

PATIENT
  Age: 77 Week
  Sex: Male

DRUGS (1)
  1. PREDNISONE TAB [Suspect]
     Indication: PULMONARY FIBROSIS
     Dosage: 30+5 MG/DAY
     Route: 048

REACTIONS (1)
  - HYPERGLYCAEMIA [None]
